FAERS Safety Report 12986832 (Version 1)
Quarter: 2016Q4

REPORT INFORMATION
  Report Type: Report from Study
  Country: IT (occurrence: IT)
  Receive Date: 20161130
  Receipt Date: 20161130
  Transmission Date: 20170207
  Serious: Yes (Other)
  Sender: FDA-Public Use
  Company Number: IT-MYLANLABS-2016M1051937

PATIENT

DRUGS (1)
  1. OXALIPLATIN. [Suspect]
     Active Substance: OXALIPLATIN
     Indication: PRODUCT USED FOR UNKNOWN INDICATION
     Dosage: 160 MG, CYCLE

REACTIONS (4)
  - Hypotension [Recovered/Resolved]
  - Oral pruritus [Recovered/Resolved]
  - Loss of consciousness [Recovered/Resolved]
  - Paraphilia [Recovered/Resolved]

NARRATIVE: CASE EVENT DATE: 20161031
